FAERS Safety Report 21801722 (Version 4)
Quarter: 2023Q2

REPORT INFORMATION
  Report Type: Spontaneous
  Country: GB (occurrence: GB)
  Receive Date: 20221230
  Receipt Date: 20230420
  Transmission Date: 20230721
  Serious: Yes (Hospitalization, Other)
  Sender: FDA-Public Use
  Company Number: GB-PURDUE PHARMA-USA-2022-0299002

PATIENT
  Age: 68 Year
  Sex: Female
  Weight: 92 kg

DRUGS (428)
  1. THEOPHYLLINE [Suspect]
     Active Substance: THEOPHYLLINE
     Indication: Depression
     Dosage: 750 MG, ONCE PER DAY
     Route: 065
  2. THEOPHYLLINE [Suspect]
     Active Substance: THEOPHYLLINE
     Indication: Abdominal discomfort
     Dosage: 750 MG, ONCE PER DAY
     Route: 065
  3. THEOPHYLLINE [Suspect]
     Active Substance: THEOPHYLLINE
     Dosage: 750 MG, QD
     Route: 065
  4. THEOPHYLLINE [Suspect]
     Active Substance: THEOPHYLLINE
     Dosage: 750 MG, QD
     Route: 065
  5. THEOPHYLLINE [Suspect]
     Active Substance: THEOPHYLLINE
     Dosage: 750 MG, QD
     Route: 065
  6. THEOPHYLLINE [Suspect]
     Active Substance: THEOPHYLLINE
     Dosage: 750 MG, QD
     Route: 065
  7. THEOPHYLLINE [Suspect]
     Active Substance: THEOPHYLLINE
     Dosage: 750 MG, ONCE PER DAY
     Route: 065
  8. THEOPHYLLINE [Suspect]
     Active Substance: THEOPHYLLINE
     Dosage: 750 MG, ONCE PER DAY
     Route: 065
  9. THEOPHYLLINE [Suspect]
     Active Substance: THEOPHYLLINE
     Dosage: 750 MG, QD
     Route: 065
  10. THEOPHYLLINE [Suspect]
     Active Substance: THEOPHYLLINE
     Dosage: 750 MG, QD
     Route: 065
  11. THEOPHYLLINE [Suspect]
     Active Substance: THEOPHYLLINE
     Dosage: 750 MG, ONCE PER DAY
     Route: 065
  12. THEOPHYLLINE [Suspect]
     Active Substance: THEOPHYLLINE
     Dosage: 750 MG, ONCE PER DAY
     Route: 065
  13. THEOPHYLLINE [Suspect]
     Active Substance: THEOPHYLLINE
     Dosage: 750 MG, QD
     Route: 065
  14. PHYLLOCONTIN [Suspect]
     Active Substance: AMINOPHYLLINE
     Indication: Product used for unknown indication
     Dosage: 400 MG, ONCE PER DAY (400 MG, QD)
     Route: 065
     Dates: start: 20200917
  15. PHYLLOCONTIN [Suspect]
     Active Substance: AMINOPHYLLINE
     Dosage: 400 MG, ONCE PER DAY (400 MG, QD)
     Route: 065
     Dates: start: 20100917
  16. PHYLLOCONTIN [Suspect]
     Active Substance: AMINOPHYLLINE
     Dosage: 400 MG, QD
     Route: 065
  17. PHYLLOCONTIN [Suspect]
     Active Substance: AMINOPHYLLINE
     Dosage: 400 MG, QD
     Route: 065
  18. PHYLLOCONTIN [Suspect]
     Active Substance: AMINOPHYLLINE
     Dosage: 400 MG, QD
     Route: 065
  19. PHYLLOCONTIN [Suspect]
     Active Substance: AMINOPHYLLINE
     Dosage: 400 MG, QD
     Route: 065
  20. PHYLLOCONTIN [Suspect]
     Active Substance: AMINOPHYLLINE
     Dosage: 400 MG, ONCE PER DAY
     Route: 065
  21. PHYLLOCONTIN [Suspect]
     Active Substance: AMINOPHYLLINE
     Dosage: 400 MG, ONCE PER DAY
     Route: 065
  22. PHYLLOCONTIN [Suspect]
     Active Substance: AMINOPHYLLINE
     Dosage: UNK
     Route: 065
  23. PROBIOTICS NOS [Suspect]
     Active Substance: PROBIOTICS NOS
     Indication: Abdominal discomfort
     Dosage: 750 MILLIGRAM
     Route: 065
  24. PROBIOTICS NOS [Suspect]
     Active Substance: PROBIOTICS NOS
     Indication: Depression
     Dosage: 750 MG,   UNK
     Route: 065
  25. PROBIOTICS NOS [Suspect]
     Active Substance: PROBIOTICS NOS
     Indication: Abdominal discomfort
     Dosage: UNK
     Route: 065
  26. PROBIOTICS NOS [Suspect]
     Active Substance: PROBIOTICS NOS
     Dosage: UNK
     Route: 065
  27. PROBIOTICS NOS [Suspect]
     Active Substance: PROBIOTICS NOS
     Dosage: 750 MG,   UNK
     Route: 065
  28. PROBIOTICS NOS [Suspect]
     Active Substance: PROBIOTICS NOS
     Dosage: UNK
     Route: 065
  29. PROBIOTICS NOS [Suspect]
     Active Substance: PROBIOTICS NOS
     Dosage: UNK
     Route: 065
  30. PROBIOTICS NOS [Suspect]
     Active Substance: PROBIOTICS NOS
     Dosage: UNK
     Route: 065
  31. LACTOBACILLUS RHAMNOSUS [Suspect]
     Active Substance: LACTOBACILLUS RHAMNOSUS
     Indication: Depression
     Dosage: 3 MILLIGRAM
  32. LACTOBACILLUS RHAMNOSUS [Suspect]
     Active Substance: LACTOBACILLUS RHAMNOSUS
     Indication: Abdominal discomfort
     Dosage: 750 MILLIGRAM
     Route: 065
  33. LACTOBACILLUS RHAMNOSUS [Suspect]
     Active Substance: LACTOBACILLUS RHAMNOSUS
     Indication: Abdominal discomfort
     Dosage: UNK
     Route: 065
  34. LACTOBACILLUS RHAMNOSUS [Suspect]
     Active Substance: LACTOBACILLUS RHAMNOSUS
     Dosage: 750 MG, UNKNOWN
     Route: 065
  35. LACTOBACILLUS RHAMNOSUS [Suspect]
     Active Substance: LACTOBACILLUS RHAMNOSUS
     Dosage: 750 MILLIGRAM
     Route: 065
  36. LACTOBACILLUS RHAMNOSUS [Suspect]
     Active Substance: LACTOBACILLUS RHAMNOSUS
     Dosage: 750 MILLIGRAM, UNK
     Route: 065
  37. LACTOBACILLUS RHAMNOSUS [Suspect]
     Active Substance: LACTOBACILLUS RHAMNOSUS
     Dosage: UNK
     Route: 065
  38. LACTOBACILLUS RHAMNOSUS [Suspect]
     Active Substance: LACTOBACILLUS RHAMNOSUS
     Dosage: 750 MILLIGRAM
     Route: 065
  39. LACTOBACILLUS RHAMNOSUS [Suspect]
     Active Substance: LACTOBACILLUS RHAMNOSUS
     Dosage: UNK
     Route: 065
  40. CARBAMAZEPINE [Suspect]
     Active Substance: CARBAMAZEPINE
     Indication: Depression
     Dosage: 750 MG, ONCE PER DAY (750 MG, QD)
     Route: 065
     Dates: start: 20100917
  41. CARBAMAZEPINE [Suspect]
     Active Substance: CARBAMAZEPINE
     Indication: Product used for unknown indication
     Dosage: 750 MG, ONCE PER DAY (750 MG, QD)
     Dates: start: 20200917
  42. CARBAMAZEPINE [Suspect]
     Active Substance: CARBAMAZEPINE
     Indication: Rheumatoid arthritis
     Dosage: 750 MG, QD
     Route: 065
     Dates: start: 20210917
  43. CARBAMAZEPINE [Suspect]
     Active Substance: CARBAMAZEPINE
     Indication: Abdominal discomfort
     Dosage: DAILY DOSE UNKNOWN, DURATION UNKNOWN
     Route: 065
  44. CARBAMAZEPINE [Suspect]
     Active Substance: CARBAMAZEPINE
     Indication: Product used for unknown indication
     Dosage: 750 MG, QD
     Route: 065
  45. CARBAMAZEPINE [Suspect]
     Active Substance: CARBAMAZEPINE
     Indication: Abdominal discomfort
     Dosage: 750 MG, QD
     Route: 065
  46. CARBAMAZEPINE [Suspect]
     Active Substance: CARBAMAZEPINE
     Dosage: 750 MG, ONCE PER DAY (750 MG, QD)
     Route: 065
  47. CARBAMAZEPINE [Suspect]
     Active Substance: CARBAMAZEPINE
     Dosage: 750 MG, ONCE PER DAY (QD)
     Route: 065
  48. CARBAMAZEPINE [Suspect]
     Active Substance: CARBAMAZEPINE
     Dosage: 750 MG, QD
     Route: 065
  49. CARBAMAZEPINE [Suspect]
     Active Substance: CARBAMAZEPINE
     Dosage: UNK
     Route: 065
  50. CARBAMAZEPINE [Suspect]
     Active Substance: CARBAMAZEPINE
     Dosage: 750 MG, QD
     Route: 065
  51. CARBAMAZEPINE [Suspect]
     Active Substance: CARBAMAZEPINE
     Dosage: 750 MG, QD
     Route: 065
  52. CARBAMAZEPINE [Suspect]
     Active Substance: CARBAMAZEPINE
     Dosage: UNK
     Route: 065
  53. CARBAMAZEPINE [Suspect]
     Active Substance: CARBAMAZEPINE
     Dosage: 750 MG, QD
     Route: 065
  54. CARBAMAZEPINE [Suspect]
     Active Substance: CARBAMAZEPINE
     Dosage: 750 MG, ONCE PER DAY (QD)
     Route: 065
  55. CARBAMAZEPINE [Suspect]
     Active Substance: CARBAMAZEPINE
     Dosage: 750 MG, ONCE PER DAY (750 MG, QD)
     Route: 065
  56. CARBAMAZEPINE [Suspect]
     Active Substance: CARBAMAZEPINE
     Dosage: 750 MG, QD
     Route: 065
  57. CARBAMAZEPINE [Suspect]
     Active Substance: CARBAMAZEPINE
     Dosage: 750 MG, QD
     Route: 065
  58. CARBAMAZEPINE [Suspect]
     Active Substance: CARBAMAZEPINE
     Dosage: UNK
     Route: 065
  59. ENBREL [Suspect]
     Active Substance: ETANERCEPT
     Indication: Rheumatoid arthritis
     Dosage: 50 MILLIGRAM, Q.W., WEEKLY, SOLUTION FOR INJECTION IN PRE-FILLED PEN, MYCLIC PENS
     Dates: start: 20100917
  60. ENBREL [Suspect]
     Active Substance: ETANERCEPT
     Dosage: 50 MG, PER WEEK,QW, MYCLIC PEN
     Route: 065
     Dates: start: 20210917
  61. ENBREL [Suspect]
     Active Substance: ETANERCEPT
     Dosage: UNK
     Route: 065
  62. ENBREL [Suspect]
     Active Substance: ETANERCEPT
     Dosage: UNK, (MYCLIC PEN)
     Route: 065
  63. ENBREL [Suspect]
     Active Substance: ETANERCEPT
     Dosage: UNK, (MYCLIC PEN)
     Route: 065
  64. ENBREL [Suspect]
     Active Substance: ETANERCEPT
     Dosage: UNK, (MYCLIC PEN)
     Route: 065
  65. ENBREL [Suspect]
     Active Substance: ETANERCEPT
     Dosage: UNK, (MYCLIC PEN)
     Route: 065
  66. ENBREL [Suspect]
     Active Substance: ETANERCEPT
     Dosage: 50 MG, QW, MYCLIC PEN
     Route: 065
  67. ENBREL [Suspect]
     Active Substance: ETANERCEPT
     Dosage: UNK, UNK (MYCLIC PEN)
     Route: 065
  68. GUANIDINE [Suspect]
     Active Substance: GUANIDINE
     Indication: Depression
     Dosage: 750 MG, UNK (750 MG (1,3-DIPHENYLGUANIDINE))
  69. GUANIDINE [Suspect]
     Active Substance: GUANIDINE
     Indication: Abdominal discomfort
     Dosage: 1,3-DIPHENYLGUANIDINE
     Route: 065
  70. GUANIDINE [Suspect]
     Active Substance: GUANIDINE
     Indication: Product used for unknown indication
     Dosage: 750 MG (1,3-DIPHENYLGUANIDINE)
     Route: 065
  71. GUANIDINE [Suspect]
     Active Substance: GUANIDINE
     Indication: Product used for unknown indication
     Dosage: 750 MG (1,3-DIPHENYLGUANIDINE)
     Route: 065
  72. GUANIDINE [Suspect]
     Active Substance: GUANIDINE
     Indication: Abdominal discomfort
     Dosage: 750 MG, QD
     Route: 065
  73. GUANIDINE [Suspect]
     Active Substance: GUANIDINE
     Dosage: 750 MG (1,3-DIPHENYLGUANIDINE)
     Route: 065
  74. GUANIDINE [Suspect]
     Active Substance: GUANIDINE
     Dosage: UNK UNK, QD (1,3-DIPHENYLGUANIDINE)
     Route: 065
  75. GUANIDINE [Suspect]
     Active Substance: GUANIDINE
     Dosage: 750 MG (1,3-DIPHENYLGUANIDINE)
     Route: 065
  76. GUANIDINE [Suspect]
     Active Substance: GUANIDINE
     Dosage: 1,3-DIPHENYLGUANIDINE
     Route: 065
  77. GUANIDINE [Suspect]
     Active Substance: GUANIDINE
     Dosage: 750 MG (1,3-DIPHENYLGUANIDINE)
     Route: 065
  78. GUANIDINE [Suspect]
     Active Substance: GUANIDINE
     Dosage: UNK UNK, QD (1,3-DIPHENYLGUANIDINE)
     Route: 065
  79. GUANIDINE [Suspect]
     Active Substance: GUANIDINE
     Dosage: 1,3-DIPHENYLGUANIDINE
     Route: 065
  80. GUANIDINE [Suspect]
     Active Substance: GUANIDINE
     Dosage: 1,3-DIPHENYLGUANIDINE
     Route: 065
  81. GUANIDINE [Suspect]
     Active Substance: GUANIDINE
     Dosage: 750 MILLIGRAM, ONCE A DAY
     Route: 065
  82. GUANIDINE [Suspect]
     Active Substance: GUANIDINE
     Route: 065
  83. GUANIDINE [Suspect]
     Active Substance: GUANIDINE
     Dosage: UNK, ONCE PER DAY (UNK UNK, QD (1,3-DIPHENYLGUANIDINE)
     Route: 065
  84. GUANIDINE [Suspect]
     Active Substance: GUANIDINE
     Dosage: 750 MG, UNK (750 MG (1,3-DIPHENYLGUANIDINE))
     Route: 065
  85. GUANIDINE [Suspect]
     Active Substance: GUANIDINE
     Dosage: 750 MG, ONCE PER DAY (750 MG, QD(1,3-DIPHENYLGUANIDINE))
     Route: 065
  86. GUANIDINE [Suspect]
     Active Substance: GUANIDINE
     Dosage: UNK, UNK (1,3-DIPHENYLGUANIDINE)
     Route: 065
  87. GUANIDINE [Suspect]
     Active Substance: GUANIDINE
     Dosage: 750 MG, UNK (750 MG (1,3-DIPHENYLGUANIDINE))
     Route: 065
  88. GUANIDINE [Suspect]
     Active Substance: GUANIDINE
     Dosage: 750 MG, ONCE PER DAY (750 MG, QD(1,3-DIPHENYLGUANIDINE))
     Route: 065
  89. GUANIDINE [Suspect]
     Active Substance: GUANIDINE
     Dosage: UNK, ONCE PER DAY (UNK UNK, QD (1,3-DIPHENYLGUANIDINE)
     Route: 065
  90. GUANIDINE [Suspect]
     Active Substance: GUANIDINE
     Dosage: UNK UNK, QD (1,3-DIPHENYLGUANIDINE)
     Route: 065
  91. GUANIDINE [Suspect]
     Active Substance: GUANIDINE
     Route: 065
  92. IRBESARTAN [Suspect]
     Active Substance: IRBESARTAN
     Indication: Abdominal discomfort
     Dosage: 150 G, QD
     Route: 065
     Dates: start: 20100912
  93. IRBESARTAN [Suspect]
     Active Substance: IRBESARTAN
     Indication: Depression
     Dosage: 150 MG, ONCE PER DAY
     Route: 065
     Dates: start: 20100912
  94. IRBESARTAN [Suspect]
     Active Substance: IRBESARTAN
     Indication: Product used for unknown indication
     Dosage: 150 G, QD
     Route: 065
     Dates: start: 20100917
  95. IRBESARTAN [Suspect]
     Active Substance: IRBESARTAN
     Indication: Abdominal discomfort
     Dosage: 150 MG, QD (150 MG, QD (DAILY))
     Route: 065
     Dates: start: 20100917
  96. IRBESARTAN [Suspect]
     Active Substance: IRBESARTAN
     Indication: Abdominal discomfort
     Dosage: 150 G, ONCE PER DAY
     Route: 065
  97. IRBESARTAN [Suspect]
     Active Substance: IRBESARTAN
     Indication: Product used for unknown indication
     Dosage: 150 G, ONCE PER DAY
     Route: 065
  98. IRBESARTAN [Suspect]
     Active Substance: IRBESARTAN
     Dosage: 150 G, DAILY, QD
     Route: 065
     Dates: start: 20100917
  99. IRBESARTAN [Suspect]
     Active Substance: IRBESARTAN
     Dosage: 150 MG, QD
     Route: 065
     Dates: start: 20100917
  100. IRBESARTAN [Suspect]
     Active Substance: IRBESARTAN
     Dosage: 150 MG, QD (150 MG, QD (DAILY))
     Route: 065
     Dates: start: 20100917
  101. IRBESARTAN [Suspect]
     Active Substance: IRBESARTAN
     Dosage: 150 G, ONCE PER DAY
     Route: 065
     Dates: start: 20100917
  102. IRBESARTAN [Suspect]
     Active Substance: IRBESARTAN
     Dosage: 150 G, ONCE PER DAY
     Route: 065
     Dates: start: 20100917
  103. IRBESARTAN [Suspect]
     Active Substance: IRBESARTAN
     Dosage: 150 MG, QD (150 MG, QD (DAILY))
     Route: 065
     Dates: start: 20100917
  104. IRBESARTAN [Suspect]
     Active Substance: IRBESARTAN
     Dosage: 150 MG, QD (150 MG, QD (DAILY))
     Route: 065
     Dates: start: 20100917
  105. IRBESARTAN [Suspect]
     Active Substance: IRBESARTAN
     Dosage: 150 MG, QD (150 MG, QD (DAILY))
     Route: 065
     Dates: start: 20100917
  106. OMEPRAZOLE [Suspect]
     Active Substance: OMEPRAZOLE
     Indication: Abdominal discomfort
     Dosage: 80 MG, QD
     Route: 065
     Dates: start: 20200917
  107. OMEPRAZOLE [Suspect]
     Active Substance: OMEPRAZOLE
     Indication: Product used for unknown indication
     Dosage: 20 MILLIGRAM, TWO TIMES A DAY
     Route: 065
     Dates: start: 20100917
  108. OMEPRAZOLE [Suspect]
     Active Substance: OMEPRAZOLE
     Indication: Product used for unknown indication
     Dosage: 20 MG, 2X/DAY
     Route: 065
     Dates: start: 20100917
  109. OMEPRAZOLE [Suspect]
     Active Substance: OMEPRAZOLE
     Indication: Abdominal discomfort
     Dosage: 20 MG, QH (480 MILLIGRAM DAILY; 20 MG, 2X/DAY)
     Route: 065
  110. OMEPRAZOLE [Suspect]
     Active Substance: OMEPRAZOLE
     Dosage: 20 MG, QH (480 MILLIGRAM DAILY; 20 MG, 2X/DAY)
     Route: 065
  111. OMEPRAZOLE [Suspect]
     Active Substance: OMEPRAZOLE
     Dosage: 80 MG, QD
     Route: 065
  112. OMEPRAZOLE [Suspect]
     Active Substance: OMEPRAZOLE
     Dosage: 20 MG, BID
     Route: 065
  113. OMEPRAZOLE [Suspect]
     Active Substance: OMEPRAZOLE
     Dosage: 20 MG, QH (480 MILLIGRAM DAILY; 20 MG, 2X/DAY)
     Route: 065
  114. OMEPRAZOLE [Suspect]
     Active Substance: OMEPRAZOLE
     Dosage: 480 MILLIGRAM DAILY; 20 MG, 2X/DAY
     Route: 065
  115. OMEPRAZOLE [Suspect]
     Active Substance: OMEPRAZOLE
     Dosage: 20 MG, QD
     Route: 065
  116. OMEPRAZOLE [Suspect]
     Active Substance: OMEPRAZOLE
     Dosage: 20 MG, QH (480 MILLIGRAM DAILY; 20 MG, 2X/DAY)
     Route: 065
  117. OMEPRAZOLE [Suspect]
     Active Substance: OMEPRAZOLE
     Dosage: 80 MG, QD
     Route: 065
     Dates: start: 20200917
  118. OMEPRAZOLE [Suspect]
     Active Substance: OMEPRAZOLE
     Dosage: 20 MG, 4 TIMES PER DAY
     Route: 065
     Dates: start: 20100917
  119. OMEPRAZOLE [Suspect]
     Active Substance: OMEPRAZOLE
     Dosage: 20 MG, 2 TIMES PER DAY (20 MG, BID 40 MG, QD 2X/DAY )
     Route: 065
     Dates: start: 20100917
  120. OMEPRAZOLE [Suspect]
     Active Substance: OMEPRAZOLE
     Dosage: 80 MG, QD
     Route: 065
     Dates: start: 20100917
  121. OMEPRAZOLE [Suspect]
     Active Substance: OMEPRAZOLE
     Dosage: 20 MG, QH (480 MILLIGRAM DAILY; 20 MG, 2X/DAY)
     Route: 065
  122. OMEPRAZOLE [Suspect]
     Active Substance: OMEPRAZOLE
     Dosage: 20 MG, QH
     Route: 065
  123. OMEPRAZOLE [Suspect]
     Active Substance: OMEPRAZOLE
     Dosage: 20 MG, QH (480 MILLIGRAM DAILY; 20 MG, 2X/DAY)
     Route: 065
  124. OMEPRAZOLE [Suspect]
     Active Substance: OMEPRAZOLE
     Dosage: 20 MG, QD
     Route: 065
  125. OMEPRAZOLE [Suspect]
     Active Substance: OMEPRAZOLE
     Dosage: 20 MG, QH
     Route: 065
  126. OMEPRAZOLE [Suspect]
     Active Substance: OMEPRAZOLE
     Dosage: 20 MG, BID
     Route: 065
  127. OMEPRAZOLE [Suspect]
     Active Substance: OMEPRAZOLE
     Dosage: 480 MILLIGRAM DAILY; 20 MG, 2X/DAY
     Route: 065
  128. OMEPRAZOLE [Suspect]
     Active Substance: OMEPRAZOLE
     Dosage: 80 MG, QD
     Route: 065
  129. OMEPRAZOLE [Suspect]
     Active Substance: OMEPRAZOLE
     Dosage: 20 MG, QD
     Route: 065
  130. OMEPRAZOLE [Suspect]
     Active Substance: OMEPRAZOLE
     Dosage: 20 MG, QH
     Route: 065
  131. OMEPRAZOLE [Suspect]
     Active Substance: OMEPRAZOLE
     Dosage: 20 MG, QH (480 MILLIGRAM DAILY; 20 MG, 2X/DAY)
     Route: 065
  132. OMEPRAZOLE [Suspect]
     Active Substance: OMEPRAZOLE
     Dosage: 480 MILLIGRAM DAILY; 20 MG, 2X/DAY
     Route: 065
  133. OMEPRAZOLE [Suspect]
     Active Substance: OMEPRAZOLE
     Dosage: 480 MILLIGRAM DAILY; 20 MG, 2X/DAY
     Route: 065
  134. OMEPRAZOLE [Suspect]
     Active Substance: OMEPRAZOLE
     Dosage: 20 MG, QH (480 MILLIGRAM DAILY; 20 MG, 2X/DAY)
     Route: 065
  135. OMEPRAZOLE [Suspect]
     Active Substance: OMEPRAZOLE
     Dosage: 20 MILLIGRAM, ONCE A DAY
     Route: 065
     Dates: start: 20200917
  136. OMEPRAZOLE [Suspect]
     Active Substance: OMEPRAZOLE
     Dosage: 40 MG, QD (20 MG, 2X/DAY)
     Route: 065
     Dates: start: 20100917
  137. OMEPRAZOLE [Suspect]
     Active Substance: OMEPRAZOLE
     Dosage: 80 MILLIGRAM DAILY (80 MG, QD)
     Route: 065
     Dates: start: 20200917
  138. SULFAGUANIDINE [Suspect]
     Active Substance: SULFAGUANIDINE
     Indication: Abdominal discomfort
     Dosage: 750 MG;
     Route: 065
  139. SULFAGUANIDINE [Suspect]
     Active Substance: SULFAGUANIDINE
     Indication: Abdominal discomfort
     Dosage: 750 MG, ONCE PER DAY
     Route: 065
  140. SULFAGUANIDINE [Suspect]
     Active Substance: SULFAGUANIDINE
     Dosage: 750 MG, QD
     Route: 065
  141. SULFAGUANIDINE [Suspect]
     Active Substance: SULFAGUANIDINE
     Dosage: 750 MG, QD
     Route: 065
  142. SULFAGUANIDINE [Suspect]
     Active Substance: SULFAGUANIDINE
     Dosage: 750 MG, QD
     Route: 065
  143. SULFAGUANIDINE [Suspect]
     Active Substance: SULFAGUANIDINE
     Dosage: 750 MG, ONCE PER DAY
     Route: 065
  144. SULFAGUANIDINE [Suspect]
     Active Substance: SULFAGUANIDINE
     Dosage: 750 MG, ONCE PER DAY
     Route: 065
  145. SULFAGUANIDINE [Suspect]
     Active Substance: SULFAGUANIDINE
     Dosage: 750 MG, QD
     Route: 065
  146. ZINC [Suspect]
     Active Substance: ZINC
     Indication: Depression
     Dosage: 750 MG,  UNK
     Route: 065
  147. ZINC [Suspect]
     Active Substance: ZINC
     Indication: Abdominal discomfort
     Dosage: 750 MG,  ONCE PER DAY, (DIETHYLDITHIOCARBAMATE)
     Route: 065
  148. ZINC [Suspect]
     Active Substance: ZINC
     Indication: Product used for unknown indication
     Dosage: 750 MG, QD (DIETHYLDITHIOCARBAMATE)
     Route: 065
  149. ZINC [Suspect]
     Active Substance: ZINC
     Indication: Abdominal discomfort
     Dosage: UNK, QD (DIETHYLDITHIOCARBAMATE)
     Route: 065
  150. ZINC [Suspect]
     Active Substance: ZINC
     Dosage: UNK
     Route: 065
  151. ZINC [Suspect]
     Active Substance: ZINC
     Dosage: UNK (DIETHYLDITHIOCARBAMATE)
     Route: 065
  152. ZINC [Suspect]
     Active Substance: ZINC
     Dosage: UNK (DIETHYLDITHIOCARBAMATE)
     Route: 065
  153. ZINC [Suspect]
     Active Substance: ZINC
     Dosage: 750 MG, UNK
     Route: 065
  154. ZINC [Suspect]
     Active Substance: ZINC
     Dosage: UNK
     Route: 065
  155. ZINC [Suspect]
     Active Substance: ZINC
     Dosage: 750 MG, ONCE PER DAY, (DIETHYLDITHIOCARBAMATE)
     Route: 065
  156. ZINC [Suspect]
     Active Substance: ZINC
     Dosage: UNK, UNK (DIETHYLDITHIOCARBAMATE)
     Route: 065
  157. ZINC [Suspect]
     Active Substance: ZINC
     Dosage: UNK
     Route: 065
  158. ZINC [Suspect]
     Active Substance: ZINC
     Dosage: 750 MG, UNK
     Route: 065
  159. ZINC [Suspect]
     Active Substance: ZINC
     Dosage: 750 MG, ONCE PER DAY, (DIETHYLDITHIOCARBAMATE)
     Route: 065
  160. ZINC [Suspect]
     Active Substance: ZINC
     Dosage: UNK (DIETHYLDITHIOCARBAMATE)
     Route: 065
  161. ZINC [Suspect]
     Active Substance: ZINC
     Dosage: UNK (DIETHYLDITHIOCARBAMATE)
     Route: 065
  162. ZINC [Suspect]
     Active Substance: ZINC
     Dosage: UNKNOWN
     Route: 065
  163. METHOTREXATE [Suspect]
     Active Substance: METHOTREXATE
     Indication: Rheumatoid arthritis
     Dosage: WEEKLY
     Route: 065
     Dates: start: 20100917
  164. METHOTREXATE [Suspect]
     Active Substance: METHOTREXATE
     Dosage: UNK, QW
     Route: 065
  165. METHOTREXATE [Suspect]
     Active Substance: METHOTREXATE
     Dosage: 18 MG, PER WEEK
     Route: 065
  166. METHOTREXATE [Suspect]
     Active Substance: METHOTREXATE
     Dosage: 18 MG, QW (WEEKLY)
     Route: 065
  167. METHOTREXATE [Suspect]
     Active Substance: METHOTREXATE
     Dosage: 18 MG, QW
     Route: 065
  168. METHOTREXATE [Suspect]
     Active Substance: METHOTREXATE
     Dosage: UNK, QW
     Route: 065
  169. METHOTREXATE [Suspect]
     Active Substance: METHOTREXATE
     Dosage: UNK
     Route: 065
  170. METHOTREXATE [Suspect]
     Active Substance: METHOTREXATE
     Dosage: 18 MG, QW
     Route: 065
  171. METHOTREXATE [Suspect]
     Active Substance: METHOTREXATE
     Dosage: UNK, PER WEEK (UNK UNK, QW)
     Route: 065
  172. METHOTREXATE [Suspect]
     Active Substance: METHOTREXATE
     Dosage: UNK,UNK
     Route: 065
  173. METHOTREXATE [Suspect]
     Active Substance: METHOTREXATE
     Dosage: 18 MG, PER WEEK
     Route: 065
  174. METHOTREXATE [Suspect]
     Active Substance: METHOTREXATE
     Dosage: UNK, PER WEEK (UNK UNK, QW)
     Route: 065
  175. METHOTREXATE [Suspect]
     Active Substance: METHOTREXATE
     Dosage: UNKNOWN, WEEKLY, QW (AT 17.5, WEEKLY)
     Dates: start: 20100917
  176. METHOTREXATE [Suspect]
     Active Substance: METHOTREXATE
     Dosage: 18 MG, PER WEEK (UNKNOWN, WEEKLY, QW (AT 17.5, WEEKLY))
     Route: 065
     Dates: start: 20100917
  177. METHOTREXATE [Suspect]
     Active Substance: METHOTREXATE
     Dosage: 17.5 MG,  UNK
     Route: 065
     Dates: start: 20100917
  178. METHOTREXATE [Suspect]
     Active Substance: METHOTREXATE
     Dosage: 18 MG, QW (UNK UNK, WEEKLY (AT 17.5, WEEKLY)
     Route: 065
     Dates: start: 20100917
  179. METHOTREXATE [Suspect]
     Active Substance: METHOTREXATE
     Dosage: 18 MG, QW (UNK UNK, WEEKLY (AT 17.5, WEEKLY)
     Route: 065
     Dates: start: 20100917
  180. METHOTREXATE [Suspect]
     Active Substance: METHOTREXATE
     Dosage: 17.5 MG, PER WEEK (17.5 MILLIGRAM, Q.W., UNK UNK, Q.W., WEEKLY, AT 17.5 (UNKNOWN UNIT),)
     Route: 065
     Dates: start: 20100917
  181. METHOTREXATE [Suspect]
     Active Substance: METHOTREXATE
     Dosage: 17.5 MILLIGRAM, QW (WEEKLY)
     Route: 065
     Dates: start: 20100917
  182. ACTIVATED CHARCOAL [Suspect]
     Active Substance: ACTIVATED CHARCOAL
     Indication: Product used for unknown indication
     Dosage: 750 ,UNK
  183. ACTIVATED CHARCOAL [Suspect]
     Active Substance: ACTIVATED CHARCOAL
     Dosage: 750 MG, UNK
     Route: 065
  184. ACTIVATED CHARCOAL [Suspect]
     Active Substance: ACTIVATED CHARCOAL
     Dosage: 750 MG, ONCE PER DAY
     Route: 065
  185. ACTIVATED CHARCOAL [Suspect]
     Active Substance: ACTIVATED CHARCOAL
     Dosage: 750 MG, QD
     Route: 065
  186. ACTIVATED CHARCOAL [Suspect]
     Active Substance: ACTIVATED CHARCOAL
     Dosage: 750 MG
     Route: 065
  187. AMINOPHYLLINE [Suspect]
     Active Substance: AMINOPHYLLINE
     Indication: Product used for unknown indication
     Dosage: 400 MG, ONCE PER DAY
     Route: 065
     Dates: start: 20200917
  188. AMINOPHYLLINE [Suspect]
     Active Substance: AMINOPHYLLINE
     Indication: Product used for unknown indication
     Dosage: 400 MG, QD
     Route: 065
     Dates: start: 20200917
  189. AMINOPHYLLINE [Suspect]
     Active Substance: AMINOPHYLLINE
     Dosage: 400 MG, QD
     Route: 065
  190. AMINOPHYLLINE [Suspect]
     Active Substance: AMINOPHYLLINE
     Dosage: 400 MG, QD
     Route: 065
  191. AMINOPHYLLINE [Suspect]
     Active Substance: AMINOPHYLLINE
     Dosage: UNK
     Route: 065
  192. AMINOPHYLLINE [Suspect]
     Active Substance: AMINOPHYLLINE
     Dosage: 400 MG, QD
     Route: 065
  193. AMINOPHYLLINE [Suspect]
     Active Substance: AMINOPHYLLINE
     Dosage: 400 MILLIGRAM, DAILY
     Route: 065
     Dates: start: 20220917
  194. BIFIDOBACTERIUM LONGUM [Suspect]
     Active Substance: BIFIDOBACTERIUM LONGUM
     Indication: Depression
     Dosage: 750 MG, UNK
     Route: 065
  195. BIFIDOBACTERIUM LONGUM [Suspect]
     Active Substance: BIFIDOBACTERIUM LONGUM
     Indication: Abdominal discomfort
     Dosage: 750 MG, UNK
     Route: 065
  196. BIFIDOBACTERIUM LONGUM [Suspect]
     Active Substance: BIFIDOBACTERIUM LONGUM
     Indication: Abdominal discomfort
     Dosage: 750 MG
     Route: 065
  197. BIFIDOBACTERIUM LONGUM [Suspect]
     Active Substance: BIFIDOBACTERIUM LONGUM
     Indication: Abdominal discomfort
     Dosage: UNK
     Route: 065
  198. BIFIDOBACTERIUM LONGUM [Suspect]
     Active Substance: BIFIDOBACTERIUM LONGUM
     Dosage: UNKNOWN
     Route: 065
  199. BIFIDOBACTERIUM LONGUM [Suspect]
     Active Substance: BIFIDOBACTERIUM LONGUM
     Dosage: UNK,UNK
     Route: 065
  200. BIFIDOBACTERIUM LONGUM [Suspect]
     Active Substance: BIFIDOBACTERIUM LONGUM
     Dosage: 750 MG, UNK
     Route: 065
  201. CARBOCYSTEINE [Suspect]
     Active Substance: CARBOCYSTEINE
     Indication: Rheumatoid arthritis
     Dosage: 750 MILLIGRAM, ONCE A DAY
     Dates: start: 20200917
  202. CARBOCYSTEINE [Suspect]
     Active Substance: CARBOCYSTEINE
     Indication: Product used for unknown indication
     Dosage: 750 MG, ONCE PER DAY
     Route: 065
     Dates: start: 20100917
  203. CARBOCYSTEINE [Suspect]
     Active Substance: CARBOCYSTEINE
     Indication: Product used for unknown indication
     Dosage: 750 MG, ONCE PER DAY (750 MG, QD)
     Route: 065
     Dates: start: 20120917
  204. CARBOCYSTEINE [Suspect]
     Active Substance: CARBOCYSTEINE
     Dosage: 750 MG, ONCE PER DAY (750 MG, QD)
     Route: 065
     Dates: start: 20120917
  205. CARBOCYSTEINE [Suspect]
     Active Substance: CARBOCYSTEINE
     Dosage: 750 MG, ONCE PER DAY
     Route: 065
     Dates: start: 20120917
  206. CARBOCYSTEINE [Suspect]
     Active Substance: CARBOCYSTEINE
     Dosage: 750 MG, ONCE PER DAY
     Route: 065
  207. CARBOCYSTEINE [Suspect]
     Active Substance: CARBOCYSTEINE
     Dosage: 750 MG, ONCE PER DAY
     Route: 065
  208. CARBOCYSTEINE [Suspect]
     Active Substance: CARBOCYSTEINE
     Dosage: 750 MG, QD
     Route: 065
  209. CARBOCYSTEINE [Suspect]
     Active Substance: CARBOCYSTEINE
     Dosage: 750 MG, ONCE PER DAY
     Route: 065
  210. CARBOCYSTEINE [Suspect]
     Active Substance: CARBOCYSTEINE
     Route: 065
  211. CARBOCYSTEINE [Suspect]
     Active Substance: CARBOCYSTEINE
     Dosage: 750 MG, ONCE PER DAY (750 MG, QD)
     Dates: start: 20210917
  212. CARBOCYSTEINE [Suspect]
     Active Substance: CARBOCYSTEINE
     Dosage: 750 MG, QD
  213. CARBOCYSTEINE [Suspect]
     Active Substance: CARBOCYSTEINE
     Dosage: 750 MG, QD
  214. CARBOCYSTEINE [Suspect]
     Active Substance: CARBOCYSTEINE
     Dosage: 750 MG, ONCE PER DAY
  215. CARBOCYSTEINE [Suspect]
     Active Substance: CARBOCYSTEINE
     Dosage: 750 MG, ONCE PER DAY
  216. CARBOCYSTEINE [Suspect]
     Active Substance: CARBOCYSTEINE
     Dosage: UNK,  UNK
  217. CARBOCYSTEINE [Suspect]
     Active Substance: CARBOCYSTEINE
     Dosage: 750 MG, ONCE PER DAY
  218. CARBOCYSTEINE [Suspect]
     Active Substance: CARBOCYSTEINE
     Dosage: 750 MG, ONCE PER DAY
  219. CARBOCYSTEINE [Suspect]
     Active Substance: CARBOCYSTEINE
     Dosage: 750 MG, QD
  220. CARBOCYSTEINE [Suspect]
     Active Substance: CARBOCYSTEINE
     Dosage: 750 MG, QD
  221. CARBOCYSTEINE [Suspect]
     Active Substance: CARBOCYSTEINE
     Dosage: 750 MG, QD
  222. CARBOCYSTEINE [Suspect]
     Active Substance: CARBOCYSTEINE
     Dosage: UNK
  223. CARBOCYSTEINE [Suspect]
     Active Substance: CARBOCYSTEINE
     Dosage: 750 MILLIGRAM, ONCE A DAY
     Dates: start: 20100917
  224. CARBOCYSTEINE [Suspect]
     Active Substance: CARBOCYSTEINE
     Dosage: UNK
  225. VENLAFAXINE HYDROCHLORIDE [Suspect]
     Active Substance: VENLAFAXINE HYDROCHLORIDE
     Indication: Rheumatoid arthritis
     Dosage: 225 MG, DAILY, PROLONGED RELEASE
     Route: 065
  226. VENLAFAXINE HYDROCHLORIDE [Suspect]
     Active Substance: VENLAFAXINE HYDROCHLORIDE
     Indication: Depression
     Dosage: 225 MG, QD
     Route: 065
  227. VENLAFAXINE HYDROCHLORIDE [Suspect]
     Active Substance: VENLAFAXINE HYDROCHLORIDE
     Indication: Product used for unknown indication
     Dosage: 225 MG, QD
     Route: 065
  228. VENLAFAXINE HYDROCHLORIDE [Suspect]
     Active Substance: VENLAFAXINE HYDROCHLORIDE
     Indication: Abdominal discomfort
     Dosage: 225 MG, QD
     Route: 065
  229. VENLAFAXINE HYDROCHLORIDE [Suspect]
     Active Substance: VENLAFAXINE HYDROCHLORIDE
     Dosage: 225 MG, QD
     Route: 065
  230. VENLAFAXINE HYDROCHLORIDE [Suspect]
     Active Substance: VENLAFAXINE HYDROCHLORIDE
     Dosage: 225 MG, QD, (PROLONGED RELEASE)
     Route: 065
  231. VENLAFAXINE HYDROCHLORIDE [Suspect]
     Active Substance: VENLAFAXINE HYDROCHLORIDE
     Dosage: UNKNOWN
     Route: 065
  232. VENLAFAXINE HYDROCHLORIDE [Suspect]
     Active Substance: VENLAFAXINE HYDROCHLORIDE
     Dosage: 225 MG (PROLONGED RELEASE,225 MG, DAILY)
     Route: 065
  233. VENLAFAXINE HYDROCHLORIDE [Suspect]
     Active Substance: VENLAFAXINE HYDROCHLORIDE
     Dosage: 225 MG, DAILY, ONCE A DAY, PROLONGED RELEASE
     Route: 065
  234. VENLAFAXINE HYDROCHLORIDE [Suspect]
     Active Substance: VENLAFAXINE HYDROCHLORIDE
     Dosage: UNK, UNK
     Route: 065
  235. VENLAFAXINE HYDROCHLORIDE [Suspect]
     Active Substance: VENLAFAXINE HYDROCHLORIDE
     Dosage: 225 MG, UNK
     Route: 065
  236. VENLAFAXINE HYDROCHLORIDE [Suspect]
     Active Substance: VENLAFAXINE HYDROCHLORIDE
     Dosage: 225 MG, ONCE PER DAY (PROLONGED RELEASE)
     Route: 065
  237. VENLAFAXINE HYDROCHLORIDE [Suspect]
     Active Substance: VENLAFAXINE HYDROCHLORIDE
     Dosage: 225 MG, ONCE PER DAY (PROLONGED RELEASE)
     Route: 065
  238. VENLAFAXINE HYDROCHLORIDE [Suspect]
     Active Substance: VENLAFAXINE HYDROCHLORIDE
     Dosage: 225 MG (PROLONGED RELEASE,225 MG, DAILY)
     Route: 065
  239. VENLAFAXINE HYDROCHLORIDE [Suspect]
     Active Substance: VENLAFAXINE HYDROCHLORIDE
     Dosage: 225 MG, DAILY, ONCE A DAY, PROLONGED RELEASE
     Route: 065
  240. VENLAFAXINE HYDROCHLORIDE [Suspect]
     Active Substance: VENLAFAXINE HYDROCHLORIDE
     Dosage: UNKNOWN
     Route: 065
  241. AMOXICILLIN [Suspect]
     Active Substance: AMOXICILLIN
     Indication: Abdominal discomfort
     Dosage: 125 MG/ 5 ML
     Route: 065
     Dates: start: 20210904
  242. AMOXICILLIN [Suspect]
     Active Substance: AMOXICILLIN
     Indication: Product used for unknown indication
     Dosage: 125 MG/ 5 ML
     Route: 065
  243. AMOXICILLIN [Suspect]
     Active Substance: AMOXICILLIN
     Indication: Abdominal discomfort
     Dosage: 125 MG/ 5 ML
     Route: 065
  244. AMOXICILLIN [Suspect]
     Active Substance: AMOXICILLIN
     Dosage: 125 MG/ 5 ML
     Route: 065
     Dates: start: 20210904
  245. AMOXICILLIN [Suspect]
     Active Substance: AMOXICILLIN
     Dosage: 125 MG/ 5 ML
     Route: 065
  246. CIPROFLOXACIN [Suspect]
     Active Substance: CIPROFLOXACIN
     Indication: Rheumatoid arthritis
     Dosage: 1000 MG, QD
     Route: 065
  247. CIPROFLOXACIN [Suspect]
     Active Substance: CIPROFLOXACIN
     Indication: Depression
     Dosage: UNK
     Route: 065
  248. CIPROFLOXACIN [Suspect]
     Active Substance: CIPROFLOXACIN
     Indication: Abdominal discomfort
     Dosage: 1000 MG, QD
     Route: 065
  249. CIPROFLOXACIN [Suspect]
     Active Substance: CIPROFLOXACIN
     Dosage: UNK
     Route: 065
  250. CIPROFLOXACIN [Suspect]
     Active Substance: CIPROFLOXACIN
     Dosage: 1000 MG, QD
     Route: 065
  251. CIPROFLOXACIN [Suspect]
     Active Substance: CIPROFLOXACIN
     Dosage: UNK
     Route: 065
  252. CIPROFLOXACIN [Suspect]
     Active Substance: CIPROFLOXACIN
     Dosage: UNK, UNK
     Route: 065
  253. CIPROFLOXACIN [Suspect]
     Active Substance: CIPROFLOXACIN
     Dosage: 1000 MG, ONCE PER DAY
     Route: 065
  254. CIPROFLOXACIN [Suspect]
     Active Substance: CIPROFLOXACIN
     Dosage: 1000 MG, ONCE PER DAY
     Route: 065
     Dates: start: 20200917
  255. CIPROFLOXACIN [Suspect]
     Active Substance: CIPROFLOXACIN
     Dosage: 1000 MG, ONCE PER DAY
     Route: 065
     Dates: start: 20200917
  256. CIPROFLOXACIN [Suspect]
     Active Substance: CIPROFLOXACIN
     Dosage: 1000 MG, ONCE PER DAY
     Route: 065
     Dates: start: 20100917
  257. CIPROFLOXACIN [Suspect]
     Active Substance: CIPROFLOXACIN
     Dosage: 1000 MG, ONCE PER DAY
     Route: 065
     Dates: start: 20100917
  258. CIPROFLOXACIN [Suspect]
     Active Substance: CIPROFLOXACIN
     Dosage: 1000 MG, ONCE PER DAY
     Route: 065
     Dates: start: 20100917
  259. IRBESARTAN [Suspect]
     Active Substance: IRBESARTAN
     Indication: Depression
     Dosage: 150 MG, ONCE PER DAY
     Route: 065
     Dates: start: 20100912
  260. IRBESARTAN [Suspect]
     Active Substance: IRBESARTAN
     Indication: Abdominal discomfort
     Dosage: 150 G, DAILY
     Route: 065
     Dates: start: 20100912
  261. IRBESARTAN [Suspect]
     Active Substance: IRBESARTAN
     Indication: Product used for unknown indication
  262. CARBAMAZEPINE [Suspect]
     Active Substance: CARBAMAZEPINE
     Indication: Depression
     Dosage: 750 MILLIGRAM, DAILY
     Route: 065
  263. CARBAMAZEPINE [Suspect]
     Active Substance: CARBAMAZEPINE
     Indication: Abdominal discomfort
     Dosage: 750 MILLIGRAM, DAILY
     Route: 065
     Dates: start: 20200917
  264. CARBAMAZEPINE [Suspect]
     Active Substance: CARBAMAZEPINE
     Dosage: 750 MILLIGRAM, DAILY
     Route: 065
     Dates: start: 20200917
  265. CARBAMAZEPINE [Suspect]
     Active Substance: CARBAMAZEPINE
     Dosage: 750 MILLIGRAM, DAILY
     Route: 065
  266. CARBAMAZEPINE [Suspect]
     Active Substance: CARBAMAZEPINE
     Indication: Product used for unknown indication
     Dosage: 750 MG, QD
     Route: 065
  267. SIMETHICONE (DIMETHICONE) [Suspect]
     Active Substance: DIMETHICONE
     Indication: Product used for unknown indication
     Dosage: 750 MILLIGRAM
     Route: 065
  268. DOXYCYCLINE [Suspect]
     Active Substance: DOXYCYCLINE
     Indication: Pulmonary pain
     Dosage: UNKNOWN
     Route: 065
  269. DOXYCYCLINE [Suspect]
     Active Substance: DOXYCYCLINE
     Indication: Pulmonary pain
     Dosage: UNKNOWN
     Route: 065
  270. DOXYCYCLINE [Suspect]
     Active Substance: DOXYCYCLINE
     Dosage: UNKNOWN
     Route: 065
  271. DOXYCYCLINE [Suspect]
     Active Substance: DOXYCYCLINE
     Dosage: UNKNOWN
     Route: 065
  272. THEOPHYLLINE [Suspect]
     Active Substance: THEOPHYLLINE
     Indication: Abdominal discomfort
     Dosage: UNKNOWN
     Route: 065
  273. THEOPHYLLINE [Suspect]
     Active Substance: THEOPHYLLINE
     Indication: Depression
     Dosage: UNKNOWN
     Route: 065
  274. THEOPHYLLINE [Suspect]
     Active Substance: THEOPHYLLINE
     Dosage: 750 MG, ONCE PER DAY, (750 MG, QD)
     Route: 065
  275. THEOPHYLLINE [Suspect]
     Active Substance: THEOPHYLLINE
     Dosage: 750 MG, QD
     Route: 065
  276. THEOPHYLLINE [Suspect]
     Active Substance: THEOPHYLLINE
     Dosage: 750 MG, ONCE PER DAY, (750 MG, QD)
     Route: 065
  277. VENLAFAXINE [Suspect]
     Active Substance: VENLAFAXINE HYDROCHLORIDE
     Indication: Rheumatoid arthritis
     Dosage: 225 MG, DAILY, PROLONGED RELEASE
     Route: 065
  278. VENLAFAXINE [Suspect]
     Active Substance: VENLAFAXINE HYDROCHLORIDE
     Indication: Depression
     Dosage: 225 MG, ONCE PER DAY
     Route: 065
  279. VENLAFAXINE [Suspect]
     Active Substance: VENLAFAXINE HYDROCHLORIDE
     Dosage: 225 MG, ONCE PER DAY
     Route: 065
  280. BENDROFLUMETHIAZIDE [Concomitant]
     Active Substance: BENDROFLUMETHIAZIDE
     Indication: Depression
     Dosage: UNK
     Route: 065
  281. BENDROFLUMETHIAZIDE [Concomitant]
     Active Substance: BENDROFLUMETHIAZIDE
     Indication: Pituitary tumour
     Dosage: 750 MG
  282. BENDROFLUMETHIAZIDE [Concomitant]
     Active Substance: BENDROFLUMETHIAZIDE
     Indication: Product used for unknown indication
     Dosage: UNK
  283. BENDROFLUMETHIAZIDE [Concomitant]
     Active Substance: BENDROFLUMETHIAZIDE
     Indication: Product used for unknown indication
     Dosage: UNK
  284. BENDROFLUMETHIAZIDE [Concomitant]
     Active Substance: BENDROFLUMETHIAZIDE
     Dosage: UNK
  285. BENDROFLUMETHIAZIDE [Concomitant]
     Active Substance: BENDROFLUMETHIAZIDE
     Dosage: 750 MG
  286. BENDROFLUMETHIAZIDE [Concomitant]
     Active Substance: BENDROFLUMETHIAZIDE
     Dosage: UNKNOWN
  287. BENDROFLUMETHIAZIDE [Concomitant]
     Active Substance: BENDROFLUMETHIAZIDE
     Dosage: 750 MILLIGRAM
  288. BENDROFLUMETHIAZIDE [Concomitant]
     Active Substance: BENDROFLUMETHIAZIDE
     Dosage: UNKNOWN
  289. BENDROFLUMETHIAZIDE [Concomitant]
     Active Substance: BENDROFLUMETHIAZIDE
     Dosage: UNK
  290. BENDROFLUMETHIAZIDE [Concomitant]
     Active Substance: BENDROFLUMETHIAZIDE
     Dosage: UNK
  291. BENDROFLUMETHIAZIDE [Concomitant]
     Active Substance: BENDROFLUMETHIAZIDE
     Dosage: UNK
  292. BENDROFLUMETHIAZIDE [Concomitant]
     Active Substance: BENDROFLUMETHIAZIDE
     Dosage: UNK
  293. BENDROFLUMETHIAZIDE [Concomitant]
     Active Substance: BENDROFLUMETHIAZIDE
     Dosage: 750 MG;
  294. BENDROFLUMETHIAZIDE [Concomitant]
     Active Substance: BENDROFLUMETHIAZIDE
     Dosage: UNK,  UNK
  295. BENDROFLUMETHIAZIDE [Concomitant]
     Active Substance: BENDROFLUMETHIAZIDE
     Dosage: UNK,  UNK
  296. BENDROFLUMETHIAZIDE [Concomitant]
     Active Substance: BENDROFLUMETHIAZIDE
     Dosage: UNK,  UNK
  297. BENDROFLUMETHIAZIDE [Concomitant]
     Active Substance: BENDROFLUMETHIAZIDE
     Dosage: 750 MG, UNK
  298. BENDROFLUMETHIAZIDE [Concomitant]
     Active Substance: BENDROFLUMETHIAZIDE
     Dosage: UNK,  UNK
  299. BENDROFLUMETHIAZIDE [Concomitant]
     Active Substance: BENDROFLUMETHIAZIDE
     Dosage: 750 MG, UNK
  300. BENDROFLUMETHIAZIDE [Concomitant]
     Active Substance: BENDROFLUMETHIAZIDE
     Dosage: UNK,  UNK
  301. BENDROFLUMETHIAZIDE [Concomitant]
     Active Substance: BENDROFLUMETHIAZIDE
     Dosage: 750 MG;
  302. BENDROFLUMETHIAZIDE [Concomitant]
     Active Substance: BENDROFLUMETHIAZIDE
     Dosage: UNK
  303. BENDROFLUMETHIAZIDE [Concomitant]
     Active Substance: BENDROFLUMETHIAZIDE
     Dosage: UNK
  304. BENDROFLUMETHIAZIDE [Concomitant]
     Active Substance: BENDROFLUMETHIAZIDE
     Dosage: UNK
  305. BENDROFLUMETHIAZIDE [Concomitant]
     Active Substance: BENDROFLUMETHIAZIDE
     Dosage: UNK MILLIGRAM
  306. BENDROFLUMETHIAZIDE [Concomitant]
     Active Substance: BENDROFLUMETHIAZIDE
     Dosage: UNK MILLIGRAM
  307. BENDROFLUMETHIAZIDE [Concomitant]
     Active Substance: BENDROFLUMETHIAZIDE
     Dosage: UNK MILLIGRAM
  308. BENDROFLUMETHIAZIDE [Concomitant]
     Active Substance: BENDROFLUMETHIAZIDE
     Dosage: UNK,  UNK
  309. BENDROFLUMETHIAZIDE [Concomitant]
     Active Substance: BENDROFLUMETHIAZIDE
     Dosage: UNK,  UNK
  310. BENDROFLUMETHIAZIDE [Concomitant]
     Active Substance: BENDROFLUMETHIAZIDE
     Dosage: UNK,  UNK
  311. BENDROFLUMETHIAZIDE [Concomitant]
     Active Substance: BENDROFLUMETHIAZIDE
     Dosage: 750 MG
  312. BENDROFLUMETHIAZIDE [Concomitant]
     Active Substance: BENDROFLUMETHIAZIDE
     Dosage: UNK
  313. BENDROFLUMETHIAZIDE [Concomitant]
     Active Substance: BENDROFLUMETHIAZIDE
     Dosage: UNK
  314. BENDROFLUMETHIAZIDE [Concomitant]
     Active Substance: BENDROFLUMETHIAZIDE
     Dosage: UNK
  315. BENDROFLUMETHIAZIDE [Concomitant]
     Active Substance: BENDROFLUMETHIAZIDE
     Dosage: UNK
  316. BENDROFLUMETHIAZIDE [Concomitant]
     Active Substance: BENDROFLUMETHIAZIDE
     Dosage: UNK
  317. BENDROFLUMETHIAZIDE [Concomitant]
     Active Substance: BENDROFLUMETHIAZIDE
     Dosage: UNK
  318. BENDROFLUMETHIAZIDE [Concomitant]
     Active Substance: BENDROFLUMETHIAZIDE
     Dosage: UNK
  319. CABERGOLINE [Concomitant]
     Active Substance: CABERGOLINE
     Indication: Empty sella syndrome
     Dosage: UNK
     Route: 065
  320. CABERGOLINE [Concomitant]
     Active Substance: CABERGOLINE
     Indication: Product used for unknown indication
     Dosage: UNK
  321. CABERGOLINE [Concomitant]
     Active Substance: CABERGOLINE
     Indication: Pituitary tumour
     Dosage: UNK,  UNK
  322. CABERGOLINE [Concomitant]
     Active Substance: CABERGOLINE
     Indication: Pituitary tumour
  323. CABERGOLINE [Concomitant]
     Active Substance: CABERGOLINE
     Indication: Pituitary tumour
  324. CABERGOLINE [Concomitant]
     Active Substance: CABERGOLINE
     Indication: Product used for unknown indication
  325. CETIRIZINE [Concomitant]
     Active Substance: CETIRIZINE HYDROCHLORIDE
     Indication: Abdominal discomfort
     Dosage: UNKNOWN
     Route: 065
  326. CETIRIZINE [Concomitant]
     Active Substance: CETIRIZINE HYDROCHLORIDE
     Indication: Product used for unknown indication
     Dosage: UNK
  327. CETIRIZINE [Concomitant]
     Active Substance: CETIRIZINE HYDROCHLORIDE
     Indication: Abdominal discomfort
     Dosage: UNK,  UNK
  328. CETIRIZINE [Concomitant]
     Active Substance: CETIRIZINE HYDROCHLORIDE
     Indication: Product used for unknown indication
     Dosage: UNK,  UNK
  329. CETIRIZINE [Concomitant]
     Active Substance: CETIRIZINE HYDROCHLORIDE
     Dosage: UNK,  UNK
  330. CETIRIZINE [Concomitant]
     Active Substance: CETIRIZINE HYDROCHLORIDE
     Dosage: UNK
  331. CETIRIZINE [Concomitant]
     Active Substance: CETIRIZINE HYDROCHLORIDE
     Dosage: UNK,  UNK
  332. CETIRIZINE [Concomitant]
     Active Substance: CETIRIZINE HYDROCHLORIDE
     Dosage: UNKNOWN
  333. CETIRIZINE [Concomitant]
     Active Substance: CETIRIZINE HYDROCHLORIDE
     Dosage: UNKNOWN
  334. CETIRIZINE [Concomitant]
     Active Substance: CETIRIZINE HYDROCHLORIDE
     Dosage: UNKNOWN
  335. CETIRIZINE [Concomitant]
     Active Substance: CETIRIZINE HYDROCHLORIDE
     Dosage: UNKNOWN
  336. CETIRIZINE [Concomitant]
     Active Substance: CETIRIZINE HYDROCHLORIDE
     Dosage: UNKNOWN
  337. CETIRIZINE [Concomitant]
     Active Substance: CETIRIZINE HYDROCHLORIDE
     Dosage: UNKNOWN
  338. CETIRIZINE [Concomitant]
     Active Substance: CETIRIZINE HYDROCHLORIDE
     Dosage: UNKNOWN
  339. CETIRIZINE [Concomitant]
     Active Substance: CETIRIZINE HYDROCHLORIDE
     Dosage: UNK
  340. CETIRIZINE [Concomitant]
     Active Substance: CETIRIZINE HYDROCHLORIDE
     Dosage: UNKNOWN
  341. EZETIMIBE [Concomitant]
     Active Substance: EZETIMIBE
     Indication: Product used for unknown indication
     Dosage: UNK
     Route: 065
  342. EZETIMIBE [Concomitant]
     Active Substance: EZETIMIBE
     Indication: Product used for unknown indication
     Dosage: 50 MG, QW, MYCLIC PEN
     Dates: start: 20210917
  343. EZETIMIBE [Concomitant]
     Active Substance: EZETIMIBE
     Dosage: 50 MG, QW, MYCLIC PEN
     Dates: start: 20100917
  344. EZETIMIBE [Concomitant]
     Active Substance: EZETIMIBE
     Dosage: UNK
  345. EZETIMIBE [Concomitant]
     Active Substance: EZETIMIBE
     Dosage: UNK
  346. EZETIMIBE [Concomitant]
     Active Substance: EZETIMIBE
     Dosage: UNK,  UNK
  347. EZETIMIBE [Concomitant]
     Active Substance: EZETIMIBE
     Dosage: UNK
  348. EZETIMIBE [Concomitant]
     Active Substance: EZETIMIBE
     Dosage: UNK
  349. EZETIMIBE [Concomitant]
     Active Substance: EZETIMIBE
     Dosage: UNK,  UNK
  350. EZETIMIBE [Concomitant]
     Active Substance: EZETIMIBE
     Dosage: UNK
  351. EZETIMIBE [Concomitant]
     Active Substance: EZETIMIBE
     Dosage: UNK
  352. EZETIMIBE [Concomitant]
     Active Substance: EZETIMIBE
     Dosage: UNK
  353. EZETIMIBE [Concomitant]
     Active Substance: EZETIMIBE
     Dosage: UNK,  UNK
  354. EZETIMIBE [Concomitant]
     Active Substance: EZETIMIBE
     Dosage: UNK
  355. EZETIMIBE [Concomitant]
     Active Substance: EZETIMIBE
     Dosage: UNK
  356. EZETIMIBE [Concomitant]
     Active Substance: EZETIMIBE
     Dosage: UNK,  UNK
  357. FOLIC ACID [Concomitant]
     Active Substance: FOLIC ACID
     Indication: Product used for unknown indication
     Dosage: UNK
     Route: 065
  358. FOLIC ACID [Concomitant]
     Active Substance: FOLIC ACID
     Indication: Product used for unknown indication
     Dosage: UNK; ;
  359. FOLIC ACID [Concomitant]
     Active Substance: FOLIC ACID
     Dosage: UNK,  UNK
  360. FOLIC ACID [Concomitant]
     Active Substance: FOLIC ACID
     Dosage: UNK,  UNK
  361. FOLIC ACID [Concomitant]
     Active Substance: FOLIC ACID
     Dosage: UNK,  UNK
  362. FOLIC ACID [Concomitant]
     Active Substance: FOLIC ACID
     Dosage: UNK; ;
  363. FOLIC ACID [Concomitant]
     Active Substance: FOLIC ACID
     Dosage: UNK,  UNK
  364. FOLIC ACID [Concomitant]
     Active Substance: FOLIC ACID
     Dosage: UNK,  UNK
  365. FOLIC ACID [Concomitant]
     Active Substance: FOLIC ACID
     Dosage: UNK
  366. FOLIC ACID [Concomitant]
     Active Substance: FOLIC ACID
     Dosage: UNK
  367. FOLIC ACID [Concomitant]
     Active Substance: FOLIC ACID
     Dosage: UNK
  368. FOLIC ACID [Concomitant]
     Active Substance: FOLIC ACID
     Dosage: UNK,  UNK
  369. FOLIC ACID [Concomitant]
     Active Substance: FOLIC ACID
     Dosage: UNK,  UNK
  370. FOLIC ACID [Concomitant]
     Active Substance: FOLIC ACID
     Dosage: UNK
  371. FOLIC ACID [Concomitant]
     Active Substance: FOLIC ACID
     Dosage: UNK
  372. FOLIC ACID [Concomitant]
     Active Substance: FOLIC ACID
     Dosage: UNK
  373. FOLIC ACID [Concomitant]
     Active Substance: FOLIC ACID
     Dosage: UNK
  374. FOLIC ACID [Concomitant]
     Active Substance: FOLIC ACID
     Dosage: UNK
  375. FOLIC ACID [Concomitant]
     Active Substance: FOLIC ACID
     Dosage: UNK
  376. FOLIC ACID [Concomitant]
     Active Substance: FOLIC ACID
     Dosage: UNK
  377. LEVOTHYROXINE [Concomitant]
     Active Substance: LEVOTHYROXINE
     Indication: Abdominal discomfort
     Dosage: UNK
  378. LEVOTHYROXINE [Concomitant]
     Active Substance: LEVOTHYROXINE
     Indication: Product used for unknown indication
     Dosage: UNK
  379. LEVOTHYROXINE [Concomitant]
     Active Substance: LEVOTHYROXINE
     Indication: Abdominal discomfort
     Dosage: UNK
  380. LEVOTHYROXINE [Concomitant]
     Active Substance: LEVOTHYROXINE
     Indication: Product used for unknown indication
     Dosage: UNK,  UNK
  381. LEVOTHYROXINE [Concomitant]
     Active Substance: LEVOTHYROXINE
     Dosage: UNK,  UNK
  382. LEVOTHYROXINE [Concomitant]
     Active Substance: LEVOTHYROXINE
     Dosage: UNK,  UNK
  383. LEVOTHYROXINE [Concomitant]
     Active Substance: LEVOTHYROXINE
     Dosage: UNK
  384. LEVOTHYROXINE [Concomitant]
     Active Substance: LEVOTHYROXINE
     Dosage: UNK,  UNK
  385. LEVOTHYROXINE [Concomitant]
     Active Substance: LEVOTHYROXINE
     Dosage: UNK,  UNK
  386. LEVOTHYROXINE [Concomitant]
     Active Substance: LEVOTHYROXINE
     Dosage: UNKNOWN
  387. LEVOTHYROXINE [Concomitant]
     Active Substance: LEVOTHYROXINE
     Dosage: UNKNOWN
  388. LEVOTHYROXINE [Concomitant]
     Active Substance: LEVOTHYROXINE
     Dosage: UNKNOWN
  389. LEVOTHYROXINE [Concomitant]
     Active Substance: LEVOTHYROXINE
     Dosage: UNKNOWN
  390. LEVOTHYROXINE [Concomitant]
     Active Substance: LEVOTHYROXINE
  391. LEVOTHYROXINE [Concomitant]
     Active Substance: LEVOTHYROXINE
  392. LEVOTHYROXINE [Concomitant]
     Active Substance: LEVOTHYROXINE
     Dosage: UNKNOWN
  393. LEVOTHYROXINE [Concomitant]
     Active Substance: LEVOTHYROXINE
     Dosage: UNK
  394. LEVOTHYROXINE [Concomitant]
     Active Substance: LEVOTHYROXINE
     Dosage: UNK
  395. LEVOTHYROXINE [Concomitant]
     Active Substance: LEVOTHYROXINE
  396. LEVOTHYROXINE [Concomitant]
     Active Substance: LEVOTHYROXINE
     Dosage: UNK
  397. ORUVAIL [Concomitant]
     Active Substance: KETOPROFEN
     Indication: Empty sella syndrome
     Dosage: UNK
  398. ORUVAIL [Concomitant]
     Active Substance: KETOPROFEN
     Indication: Product used for unknown indication
     Dosage: UNK
  399. ORUVAIL [Concomitant]
     Active Substance: KETOPROFEN
     Indication: Product used for unknown indication
     Dosage: UNK
  400. ORUVAIL [Concomitant]
     Active Substance: KETOPROFEN
     Dosage: UNK
  401. ORUVAIL [Concomitant]
     Active Substance: KETOPROFEN
     Dosage: UNK
  402. ORUVAIL [Concomitant]
     Active Substance: KETOPROFEN
     Dosage: UNK
  403. ORUVAIL [Concomitant]
     Active Substance: KETOPROFEN
     Dosage: UNK
  404. ORUVAIL [Concomitant]
     Active Substance: KETOPROFEN
     Dosage: UNK,  UNK
  405. ORUVAIL [Concomitant]
     Active Substance: KETOPROFEN
     Dosage: UNK,  UNK
  406. ORUVAIL [Concomitant]
     Active Substance: KETOPROFEN
     Dosage: UNK,  UNK
  407. ORUVAIL [Concomitant]
     Active Substance: KETOPROFEN
     Dosage: UNK,  UNK
  408. ORUVAIL [Concomitant]
     Active Substance: KETOPROFEN
     Dosage: UNK
  409. ORUVAIL [Concomitant]
     Active Substance: KETOPROFEN
     Dosage: UNK
  410. ORUVAIL [Concomitant]
     Active Substance: KETOPROFEN
     Dosage: UNK
  411. ORUVAIL [Concomitant]
     Active Substance: KETOPROFEN
     Dosage: UNK
  412. ORUVAIL [Concomitant]
     Active Substance: KETOPROFEN
     Dosage: UNK
  413. ORUVAIL [Concomitant]
     Active Substance: KETOPROFEN
     Dosage: UNKNOWN
  414. ORUVAIL [Concomitant]
     Active Substance: KETOPROFEN
     Dosage: UNKNOWN
  415. ORUVAIL [Concomitant]
     Active Substance: KETOPROFEN
     Dosage: UNK,  UNK
  416. ORUVAIL [Concomitant]
     Active Substance: KETOPROFEN
     Dosage: UNK,  UNK
  417. ORUVAIL [Concomitant]
     Active Substance: KETOPROFEN
     Dosage: UNK
  418. ORUVAIL [Concomitant]
     Active Substance: KETOPROFEN
     Dosage: UNK
  419. ORUVAIL [Concomitant]
     Active Substance: KETOPROFEN
     Dosage: UNK
  420. ORUVAIL [Concomitant]
     Active Substance: KETOPROFEN
     Dosage: UNK
  421. ORUVAIL [Concomitant]
     Active Substance: KETOPROFEN
     Dosage: UNK
  422. ORUVAIL [Concomitant]
     Active Substance: KETOPROFEN
     Dosage: UNK
  423. ORUVAIL [Concomitant]
     Active Substance: KETOPROFEN
     Dosage: UNK
  424. ACTIVATED CHARCOAL [Concomitant]
     Active Substance: ACTIVATED CHARCOAL
     Indication: Abdominal discomfort
     Dosage: 750 MILLIGRAM
  425. THEOPHYLLINE [Concomitant]
     Active Substance: THEOPHYLLINE
     Indication: Abdominal discomfort
     Dosage: 750 MG, ONCE PER DAY, (750 MG, QD
     Route: 065
  426. THEOPHYLLINE [Concomitant]
     Active Substance: THEOPHYLLINE
     Dosage: 750 MG, ONCE PER DAY, (750 MG, QD
     Route: 065
  427. DOXYCYCLINE [Concomitant]
     Active Substance: DOXYCYCLINE
     Indication: Pulmonary pain
     Dosage: UNK
     Route: 065
  428. DOXYCYCLINE [Concomitant]
     Active Substance: DOXYCYCLINE
     Indication: Pulmonary pain

REACTIONS (14)
  - Lower respiratory tract infection [Not Recovered/Not Resolved]
  - Obesity [Unknown]
  - Pulmonary pain [Unknown]
  - Intentional product misuse [Unknown]
  - Knee arthroplasty [Unknown]
  - Arthropathy [Unknown]
  - Arthropathy [Unknown]
  - Off label use [Unknown]
  - Product dose omission issue [Unknown]
  - Abdominal discomfort [Unknown]
  - Amyloid arthropathy [Unknown]
  - Overdose [Unknown]
  - Drug abuse [Unknown]
  - Rash [Not Recovered/Not Resolved]

NARRATIVE: CASE EVENT DATE: 20201001
